FAERS Safety Report 23822437 (Version 1)
Quarter: 2024Q2

REPORT INFORMATION
  Report Type: Spontaneous
  Country: FR (occurrence: FR)
  Receive Date: 20240506
  Receipt Date: 20240506
  Transmission Date: 20240716
  Serious: Yes (Life-Threatening, Hospitalization)
  Sender: FDA-Public Use
  Company Number: None

PATIENT
  Sex: Female
  Weight: 49 kg

DRUGS (5)
  1. CARBOPLATIN [Suspect]
     Active Substance: CARBOPLATIN
     Indication: Breast cancer female
     Dosage: 400 MILLIGRAM, Q21D
     Route: 042
     Dates: start: 20221118, end: 20230123
  2. EPIRUBICIN [Suspect]
     Active Substance: EPIRUBICIN
     Indication: Breast cancer female
     Dosage: 145 MILLIGRAM, Q21D
     Route: 042
     Dates: start: 20230213
  3. PACLITAXEL [Suspect]
     Active Substance: PACLITAXEL
     Indication: Breast cancer female
     Dosage: 130 MILLIGRAM, QW
     Route: 042
     Dates: start: 20221118, end: 20230206
  4. CYCLOPHOSPHAMIDE [Suspect]
     Active Substance: CYCLOPHOSPHAMIDE
     Indication: Breast cancer female
     Dosage: 950 MILLIGRAM, Q21D
     Route: 042
     Dates: start: 20230213
  5. PEMBROLIZUMAB [Suspect]
     Active Substance: PEMBROLIZUMAB
     Indication: Breast cancer female
     Dosage: 200 MILLIGRAM, Q21D
     Route: 042
     Dates: start: 20221118, end: 20230213

REACTIONS (2)
  - Septic shock [Recovered/Resolved]
  - Febrile bone marrow aplasia [Recovered/Resolved]

NARRATIVE: CASE EVENT DATE: 20230222
